FAERS Safety Report 8558111-5 (Version None)
Quarter: 2012Q3

REPORT INFORMATION
  Report Type: 
  Country: None (occurrence: None)
  Receive Date: 20120801
  Receipt Date: 20120723
  Transmission Date: 20120928
  Serious: Yes (Hospitalization, Other)
  Sender: FDA-Public Use
  Company Number: FR-ASTRAZENECA-2012SE27779

PATIENT
  Age: 31312 Day
  Sex: Male

DRUGS (8)
  1. PREVISCAN [Suspect]
     Route: 048
     Dates: start: 20120410, end: 20120419
  2. TEMERIT [Concomitant]
     Indication: HYPERTENSION
     Route: 048
     Dates: end: 20120407
  3. ATACAND [Suspect]
     Indication: HYPERTENSION
     Route: 048
     Dates: end: 20120322
  4. ATORVASTATIN [Concomitant]
     Indication: HYPERCHOLESTEROLAEMIA
     Route: 048
  5. LASIX [Suspect]
     Indication: HYPERTENSION
     Route: 048
     Dates: end: 20120407
  6. PREVISCAN [Suspect]
     Dosage: 20 MG PER DAY ALTERNATELY WITH 20 MG 1.25 DF PER DAY
     Route: 048
     Dates: end: 20120409
  7. TEMERIT [Concomitant]
     Route: 048
     Dates: start: 20120418
  8. ATACAND [Suspect]
     Route: 048
     Dates: end: 20120406

REACTIONS (10)
  - INFLAMMATION [None]
  - RENAL FAILURE ACUTE [None]
  - OVERDOSE [None]
  - RALES [None]
  - DIARRHOEA [None]
  - ORTHOSTATIC HYPOTENSION [None]
  - SPINAL COMPRESSION FRACTURE [None]
  - CONFUSIONAL STATE [None]
  - HEPATIC ENZYME ABNORMAL [None]
  - PSEUDOMONAS INFECTION [None]
